FAERS Safety Report 17899447 (Version 1)
Quarter: 2020Q2

REPORT INFORMATION
  Report Type: Spontaneous
  Country: US (occurrence: US)
  Receive Date: 20200615
  Receipt Date: 20200615
  Transmission Date: 20200714
  Serious: Yes (Death)
  Sender: FDA-Public Use
  Company Number: None

PATIENT
  Sex: Male
  Weight: 75.8 kg

DRUGS (19)
  1. AMIODARONE BOLUS AND INFUSION [Concomitant]
     Dates: start: 20200609
  2. FENTANYL INFUSION [Concomitant]
     Active Substance: FENTANYL
     Dates: start: 20200607
  3. SODIUM BICARBONATE INFUSION [Concomitant]
     Dates: start: 20200608
  4. REMDESIVIR. [Suspect]
     Active Substance: REMDESIVIR
     Indication: COVID-19
     Dosage: ?          OTHER FREQUENCY:ONCE;?
     Route: 042
     Dates: start: 20200607, end: 20200608
  5. HEPARIN INFUSION [Concomitant]
     Dates: start: 20200608
  6. HYDROCORTISONE 50MG IV Q6H [Concomitant]
     Dates: start: 20200607
  7. CEFTRIAXONE 1G IV DAILY [Concomitant]
     Dates: start: 20200607
  8. PHENYLEPHRINE INFUSION [Concomitant]
     Dates: start: 20200607
  9. VASOPRESSIN INFUSION [Concomitant]
     Dates: start: 20200607
  10. ASPIRIN CHEWABLE 81MG DAILY [Concomitant]
     Dates: start: 20200607
  11. DOBUTAMINE INFUSION [Concomitant]
     Dates: start: 20200608
  12. MIDAZOLAM INFUSION [Concomitant]
     Active Substance: MIDAZOLAM HYDROCHLORIDE
     Dates: start: 20200608
  13. PROPOFOL INFUSION [Concomitant]
     Active Substance: PROPOFOL
     Dates: start: 20200607
  14. ATORVASTATIN 80MG QHS [Concomitant]
     Dates: start: 20200607
  15. NOREPINEPHRINE INFUSION [Concomitant]
     Dates: start: 20200608
  16. ATRACURIUM INFUSION [Concomitant]
     Dates: start: 20200607
  17. VITAMIN C 1500MG IV Q6H, THIAMINE 200MG IV Q12H [Concomitant]
     Dates: start: 20200607
  18. AZITHROMYCIN 500MG IV DAILY [Concomitant]
     Dates: start: 20200607
  19. EPOPROSTENOL CONTINUOUS NEB [Concomitant]
     Dates: start: 20200607

REACTIONS (2)
  - Continuous haemodiafiltration [None]
  - Arrhythmia [None]
